FAERS Safety Report 9122878 (Version 1)
Quarter: 2013Q1

REPORT INFORMATION
  Report Type: Spontaneous
  Country: US (occurrence: US)
  Receive Date: 20130227
  Receipt Date: 20130227
  Transmission Date: 20140127
  Serious: No
  Sender: FDA-Public Use
  Company Number: US-GLAXOSMITHKLINE-A0974200A

PATIENT
  Age: 43 Year
  Sex: Female

DRUGS (5)
  1. VALTREX [Suspect]
     Indication: PRODUCT USED FOR UNKNOWN INDICATION
     Dosage: .5TAB AS REQUIRED
     Route: 048
  2. LEMON [Concomitant]
     Route: 048
  3. FISH OIL [Concomitant]
  4. VITAMIN [Concomitant]
  5. GARLIC [Concomitant]

REACTIONS (3)
  - Lymphadenopathy [Unknown]
  - Therapeutic response decreased [Unknown]
  - Drug interaction [Unknown]
